FAERS Safety Report 13705030 (Version 1)
Quarter: 2017Q2

REPORT INFORMATION
  Report Type: Spontaneous
  Country: US (occurrence: US)
  Receive Date: 20170629
  Receipt Date: 20170629
  Transmission Date: 20170830
  Serious: Yes (Other)
  Sender: FDA-Public Use
  Company Number: None

PATIENT
  Age: 43 Year
  Sex: Male
  Weight: 67.5 kg

DRUGS (4)
  1. DAILY MULTI [Concomitant]
  2. FISH OIL [Concomitant]
     Active Substance: FISH OIL
  3. GARLIC. [Concomitant]
     Active Substance: GARLIC
  4. KLONOPIN [Suspect]
     Active Substance: CLONAZEPAM
     Indication: INSOMNIA
     Dosage: ?          OTHER STRENGTH:MG;QUANTITY:1 TABLET(S);?
     Route: 048
     Dates: start: 20080610, end: 20130815

REACTIONS (3)
  - Unevaluable event [None]
  - Withdrawal syndrome [None]
  - Neuralgia [None]

NARRATIVE: CASE EVENT DATE: 20130815
